FAERS Safety Report 4556686-4 (Version None)
Quarter: 2005Q1

REPORT INFORMATION
  Report Type: 
  Country: None (occurrence: None)
  Receive Date: 20050120
  Receipt Date: 20041203
  Transmission Date: 20050727
  Serious: Yes (Life-Threatening)
  Sender: FDA-Public Use
  Company Number: US-BRISTOL-MYERS SQUIBB COMPANY-12784153

PATIENT
  Age: 60 Year
  Sex: Male
  Weight: 76 kg

DRUGS (8)
  1. SUSTIVA [Suspect]
     Indication: HIV INFECTION
     Dosage: THERAPY INTERRUPTED ON 11/19/2004
     Route: 048
     Dates: start: 20020708
  2. COMBIVIR [Suspect]
     Indication: HIV INFECTION
     Dosage: THERAPY INTERRUPTED ON 11/19/2004
     Route: 048
     Dates: start: 20020708
  3. TRIZIVIR [Suspect]
     Indication: HIV INFECTION
     Dosage: THERAPY INTERRUPTED ON 11/19/2004
     Route: 048
     Dates: start: 20020708
  4. BLINDED: PLACEBO [Suspect]
     Route: 048
     Dates: start: 20020708
  5. TRAZODONE HCL [Concomitant]
  6. M.V.I. [Concomitant]
  7. NEUPOGEN [Concomitant]
  8. VITAMIN B-12 [Concomitant]
     Route: 051

REACTIONS (9)
  - ALANINE AMINOTRANSFERASE INCREASED [None]
  - ASPARTATE AMINOTRANSFERASE ABNORMAL [None]
  - BILIRUBIN CONJUGATED INCREASED [None]
  - BLOOD ALKALINE PHOSPHATASE INCREASED [None]
  - BLOOD CREATINE PHOSPHOKINASE INCREASED [None]
  - CHROMATURIA [None]
  - DIARRHOEA [None]
  - HEPATITIS A ANTIBODY POSITIVE [None]
  - NEUTROPHIL COUNT DECREASED [None]
